FAERS Safety Report 21181749 (Version 1)
Quarter: 2022Q3

REPORT INFORMATION
  Report Type: Spontaneous
  Country: US (occurrence: US)
  Receive Date: 20220806
  Receipt Date: 20220806
  Transmission Date: 20221026
  Serious: No
  Sender: FDA-Public Use
  Company Number: US-SA-SAC20220803000088

PATIENT
  Sex: Female

DRUGS (1)
  1. DUPIXENT [Suspect]
     Active Substance: DUPILUMAB
     Indication: Asthma
     Dosage: 300MG,QOW
     Route: 058
     Dates: start: 202205, end: 202207

REACTIONS (6)
  - Dysarthria [Unknown]
  - Dry throat [Unknown]
  - Dysphagia [Unknown]
  - Lymph node pain [Unknown]
  - Eye pain [Unknown]
  - Injection site pain [Unknown]
